FAERS Safety Report 5683438-4 (Version None)
Quarter: 2008Q1

REPORT INFORMATION
  Report Type: 
  Country: None (occurrence: None)
  Receive Date: 20080326
  Receipt Date: 20080318
  Transmission Date: 20080703
  Serious: Yes (Death)
  Sender: FDA-Public Use
  Company Number: 144-21880-08031416

PATIENT
  Age: 80 Year
  Sex: Male

DRUGS (2)
  1. REVLIMID [Suspect]
     Indication: 5Q-SYNDROME
     Dosage: 10 MG, DAILY, ORAL : 5 MG, DAILY, ORAL
     Route: 048
     Dates: start: 20070525, end: 20070601
  2. REVLIMID [Suspect]
     Indication: 5Q-SYNDROME
     Dosage: 10 MG, DAILY, ORAL : 5 MG, DAILY, ORAL
     Route: 048
     Dates: start: 20070608, end: 20070818

REACTIONS (2)
  - ACUTE MYELOID LEUKAEMIA [None]
  - DISEASE PROGRESSION [None]
